FAERS Safety Report 11448634 (Version 3)
Quarter: 2015Q3

REPORT INFORMATION
  Report Type: Spontaneous
  Country: US (occurrence: US)
  Receive Date: 20150902
  Receipt Date: 20150916
  Transmission Date: 20151125
  Serious: No
  Sender: FDA-Public Use
  Company Number: US-PFIZER INC-2015260270

PATIENT
  Age: 70 Year
  Sex: Male

DRUGS (13)
  1. ALLOPURINOL. [Concomitant]
     Active Substance: ALLOPURINOL
     Dosage: 100 MG, 1X/DAY
  2. TACROLIMUS. [Concomitant]
     Active Substance: TACROLIMUS
     Dosage: 0.5 MG, 1X/DAY
  3. ASPIRIN WITH VITAMIN C [Concomitant]
     Dosage: 1 DF, 1X/DAY
  4. FAMOTIDINE. [Concomitant]
     Active Substance: FAMOTIDINE
     Dosage: 20 MG, 1X/DAY
  5. METOPROLOL [Concomitant]
     Active Substance: METOPROLOL
     Dosage: 100 MG, 1X/DAY (50 MG- 2 TAB/DAY)
  6. NEPHRO VITE RX [Concomitant]
     Active Substance: ASCORBIC ACID\BIOTIN\CALCIUM PANTOTHENATE\CYANOCOBALAMIN\FOLIC ACID\NIACINAMIDE\PYRIDOXINE HYDROCHLORIDE\RIBOFLAVIN\THIAMINE MONONITRATE
     Dosage: UNK UNK, 1X/DAY
  7. DILTIAZEM XT [Concomitant]
     Dosage: 180 MG, 1X/DAY
  8. RAPAMUNE [Suspect]
     Active Substance: SIROLIMUS
     Dosage: 0.5 MG, 2X/DAY
     Dates: start: 20150731
  9. OXYBUTYNIN [Concomitant]
     Active Substance: OXYBUTYNIN
     Dosage: 15 MG, 1X/DAY (5 MG- 3 TAB/DAY)
  10. LISINOPRIL. [Concomitant]
     Active Substance: LISINOPRIL
     Dosage: 10 MG, 1X/DAY
  11. RAPAMUNE [Suspect]
     Active Substance: SIROLIMUS
     Indication: PROPHYLAXIS AGAINST TRANSPLANT REJECTION
     Dosage: 0.5 MG, 1X/DAY
     Dates: start: 20040123, end: 20150730
  12. TAMSULOSIN [Concomitant]
     Active Substance: TAMSULOSIN
     Dosage: 0.8 MG, 1X/DAY (0.4MG- 2 CAP/DAY)
  13. WELCHOL [Concomitant]
     Active Substance: COLESEVELAM HYDROCHLORIDE
     Dosage: 2500 MG, 1X/DAY (625 MG- 4 TAB/DAY)

REACTIONS (2)
  - Peripheral swelling [Recovered/Resolved]
  - Joint swelling [Recovered/Resolved]

NARRATIVE: CASE EVENT DATE: 2015
